FAERS Safety Report 10045528 (Version 3)
Quarter: 2014Q2

REPORT INFORMATION
  Report Type: Report from Study
  Country: IL (occurrence: IL)
  Receive Date: 20140328
  Receipt Date: 20140422
  Transmission Date: 20141212
  Serious: Yes (Hospitalization)
  Sender: FDA-Public Use
  Company Number: IL-009507513-1403ISR008627

PATIENT
  Age: 67 Year
  Sex: Female

DRUGS (4)
  1. BOCEPREVIR [Suspect]
     Indication: CHRONIC HEPATITIS C
     Dosage: 800 MG, 4 TABX3/D
     Route: 048
     Dates: start: 20131216
  2. RIBAVIRIN [Suspect]
     Indication: CHRONIC HEPATITIS C
     Dosage: 600 MG, 1 TAB MORNING, 2 TAB EVENING
     Route: 048
     Dates: start: 20131118
  3. PEGINTERFERON ALFA-2A [Suspect]
     Indication: CHRONIC HEPATITIS C
     Dosage: 180 MICROGRAM, 1 IN 1WK
     Route: 058
     Dates: start: 20131118
  4. VITAMIN D (UNSPECIFIED) [Concomitant]
     Indication: HEPATITIS C

REACTIONS (3)
  - Gastroenteritis [Recovered/Resolved]
  - Anaemia [Unknown]
  - Neutropenia [Unknown]
